FAERS Safety Report 8738745 (Version 3)
Quarter: 2013Q1

REPORT INFORMATION
  Report Type: Spontaneous
  Country: None (occurrence: None)
  Receive Date: 20120806
  Receipt Date: 20121005
  Transmission Date: 20140127
  Serious: Yes (Disabling, Other)
  Sender: FDA-Public Use
  Company Number: AUR-APL-2012-03221

PATIENT
  Age: 15 Year
  Sex: Female
  Weight: 55.8 kg

DRUGS (4)
  1. FLUOXETINE [Suspect]
     Indication: ANXIETY
     Dosage: 10 MG (20 MG,1 IN 2 D),
     Dates: start: 20120618, end: 20120702
  2. FLUOXETINE [Suspect]
     Indication: ASPERGER^S DISORDER
     Dosage: 10 MG (20 MG,1 IN 2 D),
     Dates: start: 20120618, end: 20120702
  3. FLUOXETINE [Suspect]
     Indication: OBSESSIVE THOUGHTS
     Dosage: 10 MG (20 MG,1 IN 2 D),
     Dates: start: 20120618, end: 20120702
  4. SEROQUEL [Concomitant]

REACTIONS (4)
  - Amnesia [None]
  - Inappropriate schedule of drug administration [None]
  - Confusional state [None]
  - Disorientation [None]
